FAERS Safety Report 4425979-3 (Version None)
Quarter: 2004Q3

REPORT INFORMATION
  Report Type: 
  Country: None (occurrence: None)
  Receive Date: 20040812
  Receipt Date: 20040728
  Transmission Date: 20050211
  Serious: Yes (Death)
  Sender: FDA-Public Use
  Company Number: 2004S1002223

PATIENT
  Age: 34 Year
  Sex: Male

DRUGS (7)
  1. CLOZAPINE [Suspect]
     Dosage: 200MG BID, ORAL
     Route: 048
     Dates: start: 20010821
  2. QUETIAPINE [Concomitant]
  3. DIVALPROEX SODIUM [Concomitant]
  4. LORAZEPAM [Concomitant]
  5. ROSIGLITAZONE MALEATE [Concomitant]
  6. METOPROLOL [Concomitant]
  7. GLIPIZIDE [Concomitant]

REACTIONS (1)
  - DEATH [None]
